FAERS Safety Report 8353040 (Version 4)
Quarter: 2013Q1

REPORT INFORMATION
  Report Type: Spontaneous
  Country: US (occurrence: US)
  Receive Date: 20120125
  Receipt Date: 20130201
  Transmission Date: 20140127
  Serious: Yes (Hospitalization)
  Sender: FDA-Public Use
  Company Number: US-BIOGENIDEC-2012BI002259

PATIENT
  Age: 42 Year
  Sex: Female

DRUGS (17)
  1. TYSABRI [Suspect]
     Indication: MULTIPLE SCLEROSIS
     Route: 042
     Dates: start: 20070307, end: 20120126
  2. AVONEX [Concomitant]
     Dates: start: 20000901
  3. FOSAMAX [Concomitant]
     Route: 048
  4. KLONOPIN [Concomitant]
  5. NEURONTIN [Concomitant]
     Route: 048
  6. VITAMIN D3 [Concomitant]
  7. EFFEXOR [Concomitant]
     Indication: ANXIETY
  8. LIDODERM [Concomitant]
     Route: 062
  9. ASPIRIN [Concomitant]
     Route: 048
  10. OPANA [Concomitant]
     Route: 048
  11. PROVIGIL [Concomitant]
     Route: 048
  12. B-12 [Concomitant]
  13. ZANAFLEX [Concomitant]
     Route: 048
  14. SUPER B COMPLEX [Concomitant]
  15. AMBIEN [Concomitant]
     Route: 048
  16. GEODON [Concomitant]
     Indication: ANXIETY
     Route: 048
  17. XANAX [Concomitant]
     Route: 048

REACTIONS (11)
  - Splenomegaly [Recovered/Resolved]
  - Cholelithiasis [Unknown]
  - Biliary dilatation [Unknown]
  - Anxiety [Unknown]
  - Depression [Unknown]
  - Faeces discoloured [Unknown]
  - Hyperglycaemia [Unknown]
  - Hyponatraemia [Unknown]
  - Multiple sclerosis relapse [Unknown]
  - Arthralgia [Recovered/Resolved]
  - Abdominal pain [Recovered/Resolved]
